FAERS Safety Report 4674094-2 (Version None)
Quarter: 2005Q2

REPORT INFORMATION
  Report Type: 
  Country: None (occurrence: None)
  Receive Date: 20050524
  Receipt Date: 20050524
  Transmission Date: 20051028
  Serious: Yes (Life-Threatening, Hospitalization)
  Sender: FDA-Public Use
  Company Number: None

PATIENT
  Age: 69 Year
  Sex: Male
  Weight: 90 kg

DRUGS (15)
  1. DIGOXIN [Suspect]
     Indication: CARDIAC FAILURE
     Dosage: 0.25 MG QD ORAL
     Route: 048
     Dates: start: 20050131, end: 20050516
  2. METOLAZONE [Concomitant]
  3. FOLATE [Concomitant]
  4. BUMEX [Concomitant]
  5. HYDRALAZINE HCL [Concomitant]
  6. ISOSORBIDE DINITRATE [Concomitant]
  7. RANITIDINE [Concomitant]
  8. DIGOXIN [Concomitant]
  9. VITAMIN B-12 [Concomitant]
  10. VICODIN [Concomitant]
  11. LOVASTATIN [Concomitant]
  12. METOPROLOL [Concomitant]
  13. COUMADIN [Concomitant]
  14. FERROUS SULFATE TAB [Concomitant]
  15. M.V.I. [Concomitant]

REACTIONS (4)
  - CARDIAC FAILURE [None]
  - CARDIOACTIVE DRUG LEVEL INCREASED [None]
  - CONDITION AGGRAVATED [None]
  - RENAL FAILURE ACUTE [None]
